FAERS Safety Report 23806346 (Version 2)
Quarter: 2024Q3

REPORT INFORMATION
  Report Type: Spontaneous
  Country: TH (occurrence: TH)
  Receive Date: 20240502
  Receipt Date: 20240726
  Transmission Date: 20241017
  Serious: Yes (Death, Other)
  Sender: AMGEN
  Company Number: TH-KYOWAKIRIN-2024KK009211

PATIENT

DRUGS (3)
  1. ROMIPLOSTIM [Suspect]
     Active Substance: ROMIPLOSTIM
     Indication: Myelodysplastic syndrome
     Dosage: 1000 MICROGRAM, QWK
     Route: 058
  2. ROMIPLOSTIM [Suspect]
     Active Substance: ROMIPLOSTIM
     Indication: Thrombocytopenia
     Dosage: 1000 MICROGRAM, Q2WK
     Route: 058
  3. ROMIPLOSTIM [Suspect]
     Active Substance: ROMIPLOSTIM
     Indication: Aplastic anaemia
     Dosage: UNK
     Route: 065

REACTIONS (5)
  - Infection [Fatal]
  - Myelodysplastic syndrome [Unknown]
  - Clonal evolution [Unknown]
  - Off label use [Unknown]
  - Drug ineffective [Unknown]
